FAERS Safety Report 5673439-4 (Version None)
Quarter: 2008Q2

REPORT INFORMATION
  Report Type: 
  Country: None (occurrence: None)
  Receive Date: 20080219
  Receipt Date: 20071022
  Transmission Date: 20081010
  Serious: No
  Sender: FDA-Public Use
  Company Number: TPA2007A02158

PATIENT
  Age: 72 Year
  Sex: Female
  Weight: 79.3795 kg

DRUGS (7)
  1. ROZEREM [Suspect]
     Indication: INSOMNIA
     Dosage: 8 MG, QHS, PER ORAL
     Route: 048
     Dates: start: 20070924
  2. LEXAPRO [Concomitant]
  3. METOPROLOL TARTRATE [Concomitant]
  4. MONOPRIL [Concomitant]
  5. LIPITOR [Concomitant]
  6. PRILOSEC [Concomitant]
  7. ASPIRIN [Concomitant]

REACTIONS (3)
  - INITIAL INSOMNIA [None]
  - MIDDLE INSOMNIA [None]
  - POOR QUALITY SLEEP [None]
